FAERS Safety Report 17201838 (Version 2)
Quarter: 2020Q1

REPORT INFORMATION
  Report Type: Spontaneous
  Country: US (occurrence: US)
  Receive Date: 20191226
  Receipt Date: 20200103
  Transmission Date: 20200409
  Serious: No
  Sender: FDA-Public Use
  Company Number: US-PFIZER INC-2019550196

PATIENT
  Age: 66 Year
  Sex: Female
  Weight: 102.51 kg

DRUGS (2)
  1. RELPAX [Suspect]
     Active Substance: ELETRIPTAN HYDROBROMIDE
     Indication: HEADACHE
  2. RELPAX [Suspect]
     Active Substance: ELETRIPTAN HYDROBROMIDE
     Indication: MIGRAINE
     Dosage: 40 MG, AS NEEDED
     Route: 048

REACTIONS (6)
  - Visual impairment [Unknown]
  - Arthritis [Unknown]
  - Dysgraphia [Unknown]
  - Allergic sinusitis [Unknown]
  - Intentional product misuse [Unknown]
  - Thinking abnormal [Unknown]
